FAERS Safety Report 6697501-2 (Version None)
Quarter: 2010Q2

REPORT INFORMATION
  Report Type: 
  Country: None (occurrence: None)
  Receive Date: 20100426
  Receipt Date: 20100421
  Transmission Date: 20101027
  Serious: Yes (Other)
  Sender: FDA-Public Use
  Company Number: US-ABBOTT-10P-163-0639870-00

PATIENT
  Sex: Female

DRUGS (4)
  1. NORVIR [Suspect]
     Indication: ANTIRETROVIRAL THERAPY
     Route: 048
     Dates: start: 20100219
  2. ATRIPLA [Suspect]
     Indication: ANTIRETROVIRAL THERAPY
     Dosage: 1 TABLET/CAPSULE ONCE DAILY
     Route: 048
     Dates: end: 20100201
  3. TRUVADA [Suspect]
     Indication: ANTIRETROVIRAL THERAPY
     Dosage: 1 TABLET/CAPSULE ONCE DAILY
     Route: 048
     Dates: start: 20100219
  4. REYATAZ [Suspect]
     Indication: ANTIRETROVIRAL THERAPY
     Route: 048
     Dates: start: 20100219

REACTIONS (1)
  - ABORTION SPONTANEOUS [None]
